FAERS Safety Report 12823973 (Version 3)
Quarter: 2016Q4

REPORT INFORMATION
  Report Type: Spontaneous
  Country: CH (occurrence: CH)
  Receive Date: 20161006
  Receipt Date: 20161102
  Transmission Date: 20170207
  Serious: Yes (Hospitalization, Other)
  Sender: FDA-Public Use
  Company Number: CH-NOVOPROD-512081

PATIENT
  Age: 77 Year
  Sex: Male
  Weight: 84 kg

DRUGS (2)
  1. VICTOZA [Suspect]
     Active Substance: LIRAGLUTIDE
     Dosage: 1.2 MG
     Route: 065
     Dates: start: 201606
  2. VICTOZA [Suspect]
     Active Substance: LIRAGLUTIDE
     Indication: PRODUCT USED FOR UNKNOWN INDICATION
     Dosage: 1.2 MG
     Route: 065
     Dates: start: 201606

REACTIONS (3)
  - Injection site pain [Recovered/Resolved]
  - Atrial fibrillation [Recovered/Resolved]
  - Product contamination chemical [Unknown]

NARRATIVE: CASE EVENT DATE: 201607
